FAERS Safety Report 26205692 (Version 1)
Quarter: 2025Q4

REPORT INFORMATION
  Report Type: Report from Study
  Country: US (occurrence: US)
  Receive Date: 20251229
  Receipt Date: 20251229
  Transmission Date: 20260117
  Serious: Yes (Other)
  Sender: ALEXION PHARMACEUTICALS
  Company Number: US-AstraZeneca-CH-01018843A

PATIENT
  Age: 65 Year
  Sex: Male
  Weight: 78.005 kg

DRUGS (1)
  1. RAVULIZUMAB [Suspect]
     Active Substance: RAVULIZUMAB
     Indication: Myasthenia gravis
     Dosage: 2700 MILLIGRAM, Q2W
     Dates: start: 20251124, end: 20251209

REACTIONS (3)
  - Rectal haemorrhage [Recovered/Resolved]
  - Faeces discoloured [Recovered/Resolved]
  - Diplopia [Recovered/Resolved]

NARRATIVE: CASE EVENT DATE: 20251125
